FAERS Safety Report 9250749 (Version 1)
Quarter: 2013Q1

REPORT INFORMATION
  Report Type: Spontaneous
  Country: US (occurrence: None)
  Receive Date: 20130305
  Receipt Date: 20130305
  Transmission Date: 20140127
  Serious: Yes (Other)
  Sender: FDA-Public Use
  Company Number: 163-21880-12062044 (0)

PATIENT
  Age: 83 Year
  Sex: Male

DRUGS (7)
  1. REVLIMID (LENALIDOMIDE) (CAPSULES) [Suspect]
     Indication: MYELODYSPLASTIC SYNDROME
     Route: 048
     Dates: start: 20120414, end: 20120531
  2. ASPIRIN (ACETYLSALICYLIC ACID) [Concomitant]
  3. ATENOLOL (ATENOLOL) [Concomitant]
  4. LIPITOR (ATORVASTATIN) [Concomitant]
  5. LISINOPRIL (LISINOPRIL) [Concomitant]
  6. PLAVIX (CLOPIDOGREL SULFATE) [Concomitant]
  7. TRAMADOL (TRAMADOL) [Concomitant]

REACTIONS (2)
  - White blood cell count decreased [None]
  - Platelet count decreased [None]
